FAERS Safety Report 9919997 (Version 1)
Quarter: 2014Q1

REPORT INFORMATION
  Report Type: Spontaneous
  Country: US (occurrence: US)
  Receive Date: 20140224
  Receipt Date: 20140224
  Transmission Date: 20141002
  Serious: Yes (Other)
  Sender: FDA-Public Use
  Company Number: US-BAYER-2014-024840

PATIENT
  Sex: Female
  Weight: 55 kg

DRUGS (5)
  1. ALEVE CAPLET [Suspect]
     Indication: ANALGESIC THERAPY
     Dosage: 1 DF, PRN
     Route: 048
     Dates: start: 201401
  2. ALEVE CAPLET [Suspect]
     Indication: MUSCULOSKELETAL PAIN
  3. ALEVE CAPLET [Suspect]
     Indication: LIMB INJURY
  4. LEVOTHYROXINE [Concomitant]
  5. PRAVASTATIN [Concomitant]

REACTIONS (1)
  - Blood urine present [Not Recovered/Not Resolved]
